FAERS Safety Report 13749463 (Version 3)
Quarter: 2017Q3

REPORT INFORMATION
  Report Type: Report from Study
  Country: None (occurrence: DE)
  Receive Date: 20170713
  Receipt Date: 20170814
  Transmission Date: 20171127
  Serious: Yes (Hospitalization)
  Sender: FDA-Public Use
  Company Number: DE-ABBVIE-17K-062-2036474-00

PATIENT
  Age: 44 Year
  Sex: Male
  Weight: 129 kg

DRUGS (1)
  1. HUMIRA [Suspect]
     Active Substance: ADALIMUMAB
     Indication: PSORIASIS
     Route: 058
     Dates: start: 20170516, end: 2017

REACTIONS (59)
  - Hepatic cirrhosis [Unknown]
  - Blood thyroid stimulating hormone increased [Unknown]
  - Ejection fraction abnormal [Unknown]
  - Blood lactate dehydrogenase increased [Unknown]
  - Gamma-glutamyltransferase increased [Unknown]
  - Aspartate aminotransferase increased [Unknown]
  - Blood cholesterol increased [Unknown]
  - Hypothyroidism [Not Recovered/Not Resolved]
  - Left ventricular hypertrophy [Unknown]
  - Thyroid atrophy [Unknown]
  - Glomerular filtration rate decreased [Unknown]
  - Troponin T increased [Unknown]
  - Biliary tract disorder [Unknown]
  - Bile duct stent insertion [Unknown]
  - Blood urea increased [Not Recovered/Not Resolved]
  - Acute kidney injury [Unknown]
  - Hypouricaemia [Not Recovered/Not Resolved]
  - Anti-thyroid antibody positive [Unknown]
  - Fatigue [Unknown]
  - Low density lipoprotein increased [Unknown]
  - Blood albumin increased [Unknown]
  - Blood creatinine increased [Unknown]
  - Rhabdomyolysis [Not Recovered/Not Resolved]
  - Surgery [Unknown]
  - Deep vein thrombosis [Unknown]
  - Autoimmune hypothyroidism [Unknown]
  - Systolic dysfunction [Unknown]
  - Hypoventilation [Unknown]
  - Blood calcium increased [Unknown]
  - Urobilinogen urine increased [Unknown]
  - Phlebitis deep [Unknown]
  - Renal failure [Not Recovered/Not Resolved]
  - Blood uric acid increased [Unknown]
  - Hypercholesterolaemia [Unknown]
  - Autoimmune thyroiditis [Not Recovered/Not Resolved]
  - PO2 decreased [Unknown]
  - Acute respiratory failure [Unknown]
  - Chronic kidney disease [Unknown]
  - Alanine aminotransferase increased [Unknown]
  - Autoantibody positive [Unknown]
  - Essential hypertension [Unknown]
  - Oedema peripheral [Recovering/Resolving]
  - Myxoedema [Unknown]
  - Thyroid mass [Unknown]
  - Weight increased [Unknown]
  - Hepatosplenomegaly [Unknown]
  - Autoimmune thyroid disorder [Unknown]
  - Tri-iodothyronine decreased [Unknown]
  - Malaise [Unknown]
  - Blood creatine phosphokinase increased [Unknown]
  - Blood glucose increased [Unknown]
  - Hyperuricaemia [Unknown]
  - Blood triglycerides increased [Unknown]
  - pH body fluid increased [Unknown]
  - Cholecystectomy [Unknown]
  - Lymphocyte count decreased [Unknown]
  - Blood count abnormal [Not Recovered/Not Resolved]
  - Blood sodium increased [Unknown]
  - Activated partial thromboplastin time prolonged [Unknown]

NARRATIVE: CASE EVENT DATE: 2017
